FAERS Safety Report 8133779-6 (Version None)
Quarter: 2012Q1

REPORT INFORMATION
  Report Type: 
  Country: None (occurrence: None)
  Receive Date: 20120213
  Receipt Date: 20120213
  Transmission Date: 20120608
  Serious: Yes (Hospitalization)
  Sender: FDA-Public Use
  Company Number: None

PATIENT
  Age: 73 Year
  Sex: Male
  Weight: 70 kg

DRUGS (4)
  1. CLOPIDOGREL [Suspect]
     Indication: MYOCARDIAL ISCHAEMIA
     Dosage: 1 DF
     Route: 048
     Dates: start: 20071201, end: 20120125
  2. ASPIRIN [Concomitant]
  3. ATORVASTATIN [Concomitant]
  4. METOCLOPRAMIDE [Concomitant]

REACTIONS (4)
  - HAEMATOCHEZIA [None]
  - LOSS OF CONSCIOUSNESS [None]
  - HAEMATEMESIS [None]
  - DIZZINESS [None]
